FAERS Safety Report 8582632-2 (Version None)
Quarter: 2012Q3

REPORT INFORMATION
  Report Type: 
  Country: None (occurrence: None)
  Receive Date: 20120809
  Receipt Date: 20120112
  Transmission Date: 20120928
  Serious: Yes (Other)
  Sender: FDA-Public Use
  Company Number: US-ROCHE-1098176

PATIENT
  Sex: Male

DRUGS (8)
  1. XOLAIR [Suspect]
     Indication: RHINITIS SEASONAL
     Dates: start: 20081203, end: 20090409
  2. ALBUTEROL [Concomitant]
  3. XOLAIR [Suspect]
     Dates: start: 20120711
  4. PREDNISONE TAB [Concomitant]
  5. PREDNISONE TAB [Concomitant]
  6. XOLAIR [Suspect]
     Indication: ASTHMA
     Dates: start: 20070207, end: 20081115
  7. PULMICORT [Concomitant]
  8. SYMBICORT [Concomitant]

REACTIONS (10)
  - PRODUCTIVE COUGH [None]
  - CHEST DISCOMFORT [None]
  - UPPER RESPIRATORY TRACT INFECTION [None]
  - DYSPNOEA [None]
  - GASTRIC DISORDER [None]
  - SLEEP DISORDER [None]
  - VITAL CAPACITY DECREASED [None]
  - ASTHMA [None]
  - WHEEZING [None]
  - MALAISE [None]
